FAERS Safety Report 9538303 (Version 1)
Quarter: 2013Q3

REPORT INFORMATION
  Report Type: Spontaneous
  Country: US (occurrence: US)
  Receive Date: 20130920
  Receipt Date: 20130920
  Transmission Date: 20140515
  Serious: Yes (Hospitalization)
  Sender: FDA-Public Use
  Company Number: US-009507513-1309USA004493

PATIENT
  Age: 28 Year
  Sex: Female

DRUGS (1)
  1. NUVARING [Suspect]
     Indication: CONTRACEPTION
     Dosage: ONE VAGINAL RING
     Route: 067
     Dates: end: 2013

REACTIONS (2)
  - Infective tenosynovitis [Recovering/Resolving]
  - Animal bite [Recovering/Resolving]
